FAERS Safety Report 26090700 (Version 3)
Quarter: 2025Q4

REPORT INFORMATION
  Report Type: Spontaneous
  Country: JP (occurrence: JP)
  Receive Date: 20251126
  Receipt Date: 20251225
  Transmission Date: 20260118
  Serious: Yes (Other)
  Sender: BRISTOL-MYERS SQUIBB COMPANY
  Company Number: JP-BRISTOL-MYERS SQUIBB COMPANY-2025-157682

PATIENT
  Sex: Male

DRUGS (4)
  1. YERVOY [Suspect]
     Active Substance: IPILIMUMAB
     Indication: Hepatocellular carcinoma
     Route: 041
     Dates: start: 20251105, end: 20251105
  2. YERVOY [Suspect]
     Active Substance: IPILIMUMAB
     Dosage: 2ND DOSE
     Route: 041
     Dates: start: 2025, end: 2025
  3. OPDIVO [Suspect]
     Active Substance: NIVOLUMAB
     Indication: Hepatocellular carcinoma
     Route: 041
     Dates: start: 20251105, end: 20251105
  4. OPDIVO [Suspect]
     Active Substance: NIVOLUMAB
     Dosage: 2ND DOSE
     Route: 041
     Dates: start: 2025, end: 2025

REACTIONS (4)
  - Tumour associated fever [Recovered/Resolved]
  - Cytopenia [Not Recovered/Not Resolved]
  - Liver disorder [Unknown]
  - Malignant neoplasm progression [Unknown]

NARRATIVE: CASE EVENT DATE: 20251117
